FAERS Safety Report 8826081 (Version 3)
Quarter: 2013Q3

REPORT INFORMATION
  Report Type: Report from Study
  Country: US (occurrence: US)
  Receive Date: 20121005
  Receipt Date: 20130807
  Transmission Date: 20140515
  Serious: Yes (Other)
  Sender: FDA-Public Use
  Company Number: US-US-EMD SERONO, INC.-7164840

PATIENT
  Age: 55 Year
  Sex: Female

DRUGS (7)
  1. REBIF [Suspect]
     Indication: MULTIPLE SCLEROSIS
     Route: 058
     Dates: start: 20110505
  2. REBIF [Suspect]
     Route: 058
  3. ACTHAR INJECTION [Concomitant]
     Indication: GAIT DISTURBANCE
     Dates: start: 201204, end: 201204
  4. ACTHAR INJECTION [Concomitant]
     Dates: start: 201208, end: 201209
  5. METFORMIN [Concomitant]
     Indication: DIABETES MELLITUS
  6. LISINOPRIL [Concomitant]
     Indication: HYPERTENSION
  7. NAMENDA [Concomitant]
     Indication: NYSTAGMUS

REACTIONS (4)
  - Deep vein thrombosis [Recovering/Resolving]
  - Myalgia [Unknown]
  - Headache [Unknown]
  - Injection site bruising [Unknown]
